FAERS Safety Report 7157158-3 (Version None)
Quarter: 2010Q4

REPORT INFORMATION
  Report Type: 
  Country: None (occurrence: None)
  Receive Date: 20101214
  Receipt Date: 20091214
  Transmission Date: 20110411
  Serious: No
  Sender: FDA-Public Use
  Company Number: US-ASTRAZENECA-2009SE32075

PATIENT
  Age: 70 Year
  Sex: Female

DRUGS (4)
  1. CRESTOR [Suspect]
     Route: 048
     Dates: start: 20090301
  2. OMEPRAZOLE [Concomitant]
     Route: 048
  3. ASPIRIN [Concomitant]
     Route: 048
  4. XANAX [Concomitant]
     Route: 048

REACTIONS (3)
  - BLOOD URINE PRESENT [None]
  - MICTURITION URGENCY [None]
  - POLLAKIURIA [None]
